FAERS Safety Report 5607127-7 (Version None)
Quarter: 2008Q1

REPORT INFORMATION
  Report Type: 
  Country: None (occurrence: None)
  Receive Date: 20080129
  Receipt Date: 20080117
  Transmission Date: 20080703
  Serious: Yes (Other)
  Sender: FDA-Public Use
  Company Number: US-PFIZER INC-2007095967

PATIENT
  Age: 66 Year
  Sex: Female
  Weight: 72.6 kg

DRUGS (8)
  1. LYRICA [Suspect]
     Indication: FIBROMYALGIA
     Route: 048
  2. OXYCODONE [Concomitant]
  3. VALIUM [Concomitant]
  4. PAXIL [Concomitant]
  5. WARFARIN SODIUM [Concomitant]
  6. PHAZYME [Concomitant]
  7. BISACODYL [Concomitant]
  8. FIORICET [Concomitant]

REACTIONS (10)
  - AGITATION [None]
  - CRYING [None]
  - DRUG INEFFECTIVE [None]
  - DYSKINESIA [None]
  - FATIGUE [None]
  - FEELING ABNORMAL [None]
  - INSOMNIA [None]
  - OEDEMA PERIPHERAL [None]
  - RESTLESSNESS [None]
  - WITHDRAWAL SYNDROME [None]
